FAERS Safety Report 18870816 (Version 2)
Quarter: 2021Q1

REPORT INFORMATION
  Report Type: Report from Study
  Country: None (occurrence: TW)
  Receive Date: 20210209
  Receipt Date: 20210316
  Transmission Date: 20210420
  Serious: Yes (Hospitalization, Other)
  Sender: FDA-Public Use
  Company Number: TW-ABBVIE-21K-153-3760036-00

PATIENT
  Age: 48 Year
  Sex: Female

DRUGS (2)
  1. HUMIRA [Suspect]
     Active Substance: ADALIMUMAB
     Indication: COLITIS ULCERATIVE
     Route: 058
     Dates: start: 20201012, end: 20210121
  2. HUMIRA [Suspect]
     Active Substance: ADALIMUMAB
     Indication: COLITIS ULCERATIVE
     Route: 058
     Dates: start: 20170928, end: 20171123

REACTIONS (10)
  - Anal fistula [Unknown]
  - Large intestine perforation [Unknown]
  - Rectal perforation [Unknown]
  - Abdominal pain [Recovering/Resolving]
  - Colitis ulcerative [Unknown]
  - Pelvic abscess [Unknown]
  - Drug ineffective [Unknown]
  - Haematochezia [Recovering/Resolving]
  - Intestinal fistula [Unknown]
  - Pelvic infection [Unknown]

NARRATIVE: CASE EVENT DATE: 2020
